FAERS Safety Report 7273338-0 (Version None)
Quarter: 2011Q1

REPORT INFORMATION
  Report Type: 
  Country: None (occurrence: None)
  Receive Date: 20110203
  Receipt Date: 20101015
  Transmission Date: 20110831
  Serious: No
  Sender: FDA-Public Use
  Company Number: US-ABBOTT-10P-163-0679080-00

PATIENT
  Sex: Female
  Weight: 66.738 kg

DRUGS (1)
  1. SYNTHROID [Suspect]
     Indication: HYPOTHYROIDISM
     Dates: start: 19900101, end: 20101001

REACTIONS (3)
  - GINGIVAL SWELLING [None]
  - CONSTIPATION [None]
  - MUSCLE SPASMS [None]
